FAERS Safety Report 17269370 (Version 1)
Quarter: 2020Q1

REPORT INFORMATION
  Report Type: Report from Study
  Country: CO (occurrence: CO)
  Receive Date: 20200114
  Receipt Date: 20200114
  Transmission Date: 20200409
  Serious: Yes (Death, Hospitalization, Other)
  Sender: FDA-Public Use
  Company Number: CO-ASTELLAS-2019US017492

PATIENT
  Age: 33 Year
  Sex: Female
  Weight: 63 kg

DRUGS (3)
  1. TACROLIMUS. [Suspect]
     Active Substance: TACROLIMUS
     Dosage: 6 MG, ONCE DAILY (1 CAPSULE OF 5 MG AND 1 CAPSULE OF 1 MG)
     Route: 048
     Dates: end: 201910
  2. MYCOPHENOLATE [Concomitant]
     Active Substance: MYCOPHENOLIC ACID
     Indication: TRANSPLANT
     Route: 048
     Dates: start: 20130305
  3. TACROLIMUS. [Suspect]
     Active Substance: TACROLIMUS
     Indication: RENAL TRANSPLANT
     Dosage: 5 MG, ONCE DAILY (1 CAPSULE OF 5 MG)
     Route: 048
     Dates: start: 20130305

REACTIONS (3)
  - Blood creatinine increased [Recovering/Resolving]
  - Diarrhoea [Recovered/Resolved]
  - Death [Fatal]

NARRATIVE: CASE EVENT DATE: 20190403
